FAERS Safety Report 6436604-4 (Version None)
Quarter: 2009Q4

REPORT INFORMATION
  Report Type: 
  Country: None (occurrence: None)
  Receive Date: 20091111
  Receipt Date: 20091105
  Transmission Date: 20100525
  Serious: Yes (Other)
  Sender: FDA-Public Use
  Company Number: CHPA2009US21626

PATIENT
  Age: 87 Year
  Sex: Female

DRUGS (1)
  1. SLOW FE IRON TABLETS (NCH) [Suspect]
     Indication: BLOOD IRON INCREASED
     Dosage: UNK
     Route: 048

REACTIONS (2)
  - HEPATIC NEOPLASM [None]
  - NEOPLASM MALIGNANT [None]
